FAERS Safety Report 18954140 (Version 1)
Quarter: 2021Q1

REPORT INFORMATION
  Report Type: Report from Study
  Country: JP (occurrence: JP)
  Receive Date: 20210301
  Receipt Date: 20210301
  Transmission Date: 20210420
  Serious: Yes (Hospitalization)
  Sender: FDA-Public Use
  Company Number: JP-GLAXOSMITHKLINE-JP2019JPN011014

PATIENT
  Age: 6 Decade
  Sex: Female
  Weight: 54 kg

DRUGS (30)
  1. BELIMUMAB SUBCUTANEOUS [Suspect]
     Active Substance: BELIMUMAB
     Indication: SYSTEMIC LUPUS ERYTHEMATOSUS
     Dosage: 200 MG, WE
     Route: 058
     Dates: start: 20181220, end: 20190325
  2. SOLU?CORTEF [Concomitant]
     Active Substance: HYDROCORTISONE SODIUM SUCCINATE
     Indication: SYSTEMIC LUPUS ERYTHEMATOSUS
     Dosage: 100 MG, 1D
     Dates: start: 20181109, end: 20181109
  3. PREDONINE [Suspect]
     Active Substance: PREDNISOLONE
     Dosage: 9 MG, 1D
     Route: 048
     Dates: start: 20190413
  4. NO DRUG NAME [Suspect]
     Active Substance: UNSPECIFIED INGREDIENT
     Dosage: 10 MG, 1D
     Route: 030
     Dates: start: 20190412, end: 20190412
  5. NEUROTROPIN (CYANOCOBALAMIN + LIDOCAINE HCL + PYRIDOXINE HCL + THIAMIN [Concomitant]
     Dosage: UNK
  6. LIPITOR TABLETS [Concomitant]
     Dosage: UNK
  7. BELIMUMAB SUBCUTANEOUS [Suspect]
     Active Substance: BELIMUMAB
     Dosage: 200 MG
     Route: 058
     Dates: start: 20190817
  8. ATELEC [Suspect]
     Active Substance: CILNIDIPINE
     Indication: PALPITATIONS
     Dosage: 5 MG, 1D
     Route: 048
     Dates: start: 20181029, end: 20181105
  9. PREDONINE [Suspect]
     Active Substance: PREDNISOLONE
     Indication: ABDOMINAL PAIN
     Dosage: 9 MG, 1D
     Route: 048
     Dates: start: 20190118, end: 20190409
  10. ASPARA POTASSIUM [Concomitant]
     Active Substance: POTASSIUM ASPARTATE
     Indication: PROPHYLAXIS
     Dosage: UNK
  11. NIFLAN [Concomitant]
     Active Substance: PRANOPROFEN
     Dosage: UNK
  12. PREDNISOLONE. [Suspect]
     Active Substance: PREDNISOLONE
     Indication: SYSTEMIC LUPUS ERYTHEMATOSUS
     Dosage: 10 MG, 1D
     Route: 048
     Dates: start: 20151118
  13. GOOFICE [Suspect]
     Active Substance: ELOBIXIBAT
     Indication: ABDOMINAL PAIN
     Dosage: UNK
     Route: 048
  14. GOOFICE [Suspect]
     Active Substance: ELOBIXIBAT
     Indication: CONSTIPATION
  15. NEXIUM [Concomitant]
     Active Substance: ESOMEPRAZOLE MAGNESIUM
     Indication: PROPHYLAXIS
     Dosage: UNK
  16. PREDONINE [Suspect]
     Active Substance: PREDNISOLONE
     Indication: SYSTEMIC LUPUS ERYTHEMATOSUS
     Dosage: 10 MG, 1D
     Route: 048
     Dates: end: 20190117
  17. NO DRUG NAME [Suspect]
     Active Substance: UNSPECIFIED INGREDIENT
     Dosage: 30 MG, 1D
     Route: 030
     Dates: start: 20190410, end: 20190410
  18. LYRICA [Suspect]
     Active Substance: PREGABALIN
     Dosage: UNK
     Route: 048
     Dates: end: 20181220
  19. DENOTAS [Concomitant]
     Active Substance: CALCIUM CARBONATE\CHOLECALCIFEROL\MAGNESIUM CARBONATE
     Dosage: UNK
  20. BELIMUMAB [Suspect]
     Active Substance: BELIMUMAB
     Indication: SYSTEMIC LUPUS ERYTHEMATOSUS
     Dosage: 10 MG/KG, EVERY TWO WEEKS
     Route: 041
     Dates: start: 20180514, end: 20180611
  21. BELIMUMAB [Suspect]
     Active Substance: BELIMUMAB
     Dosage: 10 MG/KG, EVERY FOUR WEEKS
     Route: 041
     Dates: start: 20180709, end: 20181126
  22. LYRICA [Suspect]
     Active Substance: PREGABALIN
     Dosage: UNK
     Route: 048
     Dates: start: 20181222
  23. LIPIDIL [Concomitant]
     Active Substance: FENOFIBRATE
  24. LOXONIN TAPE [Concomitant]
     Active Substance: LOXOPROFEN SODIUM DIHYDRATE
     Dosage: UNK
  25. LAXOBERON TABLET [Concomitant]
     Dosage: UNK
     Dates: start: 20180806
  26. PRALIA SUBCUTANEOUS INJECTION [Concomitant]
     Dosage: UNK
  27. NO DRUG NAME [Suspect]
     Active Substance: UNSPECIFIED INGREDIENT
     Indication: SYSTEMIC LUPUS ERYTHEMATOSUS
     Dosage: 20 MG, 1D
     Route: 030
     Dates: start: 20180713, end: 20180713
  28. NO DRUG NAME [Suspect]
     Active Substance: UNSPECIFIED INGREDIENT
     Dosage: 20 MG, 1D
     Route: 030
     Dates: start: 20190411, end: 20190411
  29. ATELEC [Suspect]
     Active Substance: CILNIDIPINE
     Indication: BLOOD PRESSURE INCREASED
     Dosage: 10 MG, 1D
     Route: 048
     Dates: start: 20181013
  30. PRORENAL (JAPAN) [Concomitant]
     Active Substance: LIMAPROST

REACTIONS (8)
  - Palpitations [Recovering/Resolving]
  - Back pain [Recovering/Resolving]
  - Blood pressure increased [Recovering/Resolving]
  - Diarrhoea [Recovered/Resolved]
  - Hypoaesthesia [Not Recovered/Not Resolved]
  - Upper respiratory tract inflammation [Recovered/Resolved]
  - Abdominal pain [Recovering/Resolving]
  - Balance disorder [Recovering/Resolving]

NARRATIVE: CASE EVENT DATE: 20180712
